FAERS Safety Report 9244807 (Version 2)
Quarter: 2013Q2

REPORT INFORMATION
  Report Type: Spontaneous
  Country: US (occurrence: US)
  Receive Date: 20130422
  Receipt Date: 20130520
  Transmission Date: 20140414
  Serious: Yes (Other)
  Sender: FDA-Public Use
  Company Number: US-JNJFOC-20130406521

PATIENT
  Age: 41 Year
  Sex: Female
  Weight: 103.42 kg

DRUGS (10)
  1. REMICADE [Suspect]
     Indication: COLITIS ULCERATIVE
     Route: 042
     Dates: start: 20120901
  2. REMICADE [Suspect]
     Indication: COLITIS ULCERATIVE
     Dosage: APPROXIMATELY 6 INFUSIONS WERE RECEIVED
     Route: 042
     Dates: start: 20130409, end: 20130409
  3. REMICADE [Suspect]
     Indication: CROHN^S DISEASE
     Route: 042
     Dates: start: 20120901
  4. REMICADE [Suspect]
     Indication: CROHN^S DISEASE
     Dosage: APPROXIMATELY 6 INFUSIONS WERE RECEIVED
     Route: 042
     Dates: start: 20130409, end: 20130409
  5. NEURONTIN [Concomitant]
     Indication: PAIN
     Dosage: TOTAL DAILY DOSE WAS 900MG
     Route: 065
  6. FLUOXETINE [Concomitant]
     Indication: DEPRESSION
     Route: 065
  7. ELAVIL [Concomitant]
     Indication: PAIN
     Route: 065
  8. MELATONIN [Concomitant]
     Indication: SLEEP DISORDER
     Route: 065
  9. ZOFRAN [Concomitant]
     Indication: NAUSEA
     Route: 042
     Dates: start: 20130409
  10. ZOFRAN [Concomitant]
     Indication: PREMEDICATION
     Route: 042
     Dates: start: 20130409

REACTIONS (9)
  - Pharyngeal oedema [Recovered/Resolved]
  - Dyspnoea [Recovered/Resolved]
  - Wheezing [Recovered/Resolved]
  - Oxygen saturation decreased [Recovered/Resolved]
  - Infusion related reaction [Recovered/Resolved]
  - Bronchospasm [Recovered/Resolved]
  - Flushing [Recovered/Resolved]
  - Heart rate increased [Recovered/Resolved]
  - Nausea [Recovered/Resolved]
